FAERS Safety Report 17970124 (Version 1)
Quarter: 2020Q3

REPORT INFORMATION
  Report Type: Spontaneous
  Country: FR (occurrence: FR)
  Receive Date: 20200701
  Receipt Date: 20200701
  Transmission Date: 20201103
  Serious: Yes (Death)
  Sender: FDA-Public Use
  Company Number: FR-009507513-2006FRA010458

PATIENT
  Age: 75 Year
  Sex: Male
  Weight: 118 kg

DRUGS (18)
  1. CEFOTAXIME SODIUM [Suspect]
     Active Substance: CEFOTAXIME SODIUM
     Indication: DEVICE RELATED INFECTION
     Dosage: 3 GRAM, QD
     Route: 042
     Dates: start: 20200514, end: 20200518
  2. OFLOXACIN. [Suspect]
     Active Substance: OFLOXACIN
     Indication: DEVICE RELATED INFECTION
     Dosage: 600 MILLIGRAM, QD
     Route: 048
     Dates: start: 20200505, end: 20200513
  3. FORLAX [Concomitant]
     Active Substance: POLYETHYLENE GLYCOL 4000
     Dosage: UNK
     Route: 048
     Dates: start: 20200515, end: 20200525
  4. DOLIPRANE [Concomitant]
     Active Substance: ACETAMINOPHEN
     Dosage: UNK
     Route: 048
     Dates: end: 20200531
  5. DAPTOMYCIN. [Suspect]
     Active Substance: DAPTOMYCIN
     Indication: DEVICE RELATED INFECTION
     Dosage: 10 MG/KG
     Route: 042
     Dates: start: 20200514, end: 20200516
  6. XARELTO [Concomitant]
     Active Substance: RIVAROXABAN
     Dosage: UNK
     Route: 048
     Dates: end: 20200528
  7. ATENOLOL. [Concomitant]
     Active Substance: ATENOLOL
     Dosage: 100 MG
     Route: 048
     Dates: end: 20200528
  8. SERTRALINE HYDROCHLORIDE. [Concomitant]
     Active Substance: SERTRALINE HYDROCHLORIDE
     Dosage: 50 MG
     Route: 048
     Dates: end: 20200528
  9. NOVORAPID [Concomitant]
     Active Substance: INSULIN ASPART
     Dosage: CONCENTRATION: 100 U/ML; FORMULATION: SOLUTION FOR INJECTION IN A VIAL; UNK
     Route: 058
     Dates: start: 20200421, end: 20200531
  10. ORAMORPH [Concomitant]
     Active Substance: MORPHINE SULFATE
     Dosage: UNK
     Route: 042
     Dates: start: 20200421, end: 20200528
  11. GABAPENTIN. [Concomitant]
     Active Substance: GABAPENTIN
     Dosage: UNK
     Route: 048
     Dates: start: 20200422, end: 20200528
  12. TOUJEO [Concomitant]
     Active Substance: INSULIN GLARGINE
     Dosage: CONCENTRATION: 300 UNITS / ML; FORMULATION: SOLUTION FOR INJECTION IN PRE?FILLED PEN; UNK
     Route: 058
     Dates: end: 20200528
  13. ATORVASTATIN CALCIUM. [Concomitant]
     Active Substance: ATORVASTATIN CALCIUM
     Dosage: 10 MG
     Route: 048
     Dates: end: 20200528
  14. ZOPICLONE [Concomitant]
     Active Substance: ZOPICLONE
     Dosage: 7.5 MG
     Route: 048
     Dates: end: 20200528
  15. RIFAMPIN. [Suspect]
     Active Substance: RIFAMPIN
     Indication: DEVICE RELATED INFECTION
     Dosage: 1200 MILLIGRAM, QD
     Route: 048
     Dates: start: 20200505, end: 20200513
  16. EZETIMIBE. [Concomitant]
     Active Substance: EZETIMIBE
     Dosage: 10 MG
     Route: 048
     Dates: end: 20200528
  17. ULTRA LEVURE [Concomitant]
     Active Substance: SACCHAROMYCES CEREVISIAE
     Dosage: UNK
     Route: 048
     Dates: start: 20200514, end: 20200528
  18. FUROSEMIDE. [Concomitant]
     Active Substance: FUROSEMIDE
     Dosage: 500 MG
     Route: 048
     Dates: end: 20200528

REACTIONS (2)
  - Acute kidney injury [Fatal]
  - Vasculitis necrotising [Fatal]

NARRATIVE: CASE EVENT DATE: 20200516
